FAERS Safety Report 19867445 (Version 1)
Quarter: 2021Q3

REPORT INFORMATION
  Report Type: Spontaneous
  Country: US (occurrence: US)
  Receive Date: 20210921
  Receipt Date: 20210921
  Transmission Date: 20211014
  Serious: Yes (Hospitalization)
  Sender: FDA-Public Use
  Company Number: None

PATIENT
  Age: 41 Year
  Sex: Male
  Weight: 63.8 kg

DRUGS (5)
  1. TAXOL [Suspect]
     Active Substance: PACLITAXEL
     Dates: end: 20180119
  2. CARBOPLATIN. [Suspect]
     Active Substance: CARBOPLATIN
     Dates: end: 20180210
  3. G?CSF (FILGRASTIM,AMGEN) [Suspect]
     Active Substance: FILGRASTIM
     Dosage: ?          OTHER DOSE:34 MILLION IU ;?
     Dates: end: 20180228
  4. IFOSFAMIDE. [Suspect]
     Active Substance: IFOSFAMIDE
     Dates: end: 20180121
  5. ETOPOSIDE (VP?16) [Suspect]
     Active Substance: ETOPOSIDE
     Dates: end: 20180210

REACTIONS (4)
  - Sepsis [None]
  - White blood cell count decreased [None]
  - Enterococcal infection [None]
  - Culture urine positive [None]

NARRATIVE: CASE EVENT DATE: 20180317
